FAERS Safety Report 6723214-4 (Version None)
Quarter: 2010Q2

REPORT INFORMATION
  Report Type: 
  Country: None (occurrence: None)
  Receive Date: 20100513
  Receipt Date: 20100507
  Transmission Date: 20101027
  Serious: Yes (Other)
  Sender: FDA-Public Use
  Company Number: BR-JNJFOC-20100502907

PATIENT
  Age: 1 Month
  Sex: Female
  Weight: 3.6 kg

DRUGS (2)
  1. DAKTARIN [Suspect]
     Route: 048
  2. DAKTARIN [Suspect]
     Indication: BACTERIAL INFECTION
     Route: 048

REACTIONS (3)
  - DRUG PRESCRIBING ERROR [None]
  - DYSPNOEA [None]
  - MEDICATION ERROR [None]
